FAERS Safety Report 9140138 (Version 1)
Quarter: 2013Q1

REPORT INFORMATION
  Report Type: Report from Study
  Country: SE (occurrence: SE)
  Receive Date: 20130305
  Receipt Date: 20130305
  Transmission Date: 20140127
  Serious: Yes (Other)
  Sender: FDA-Public Use
  Company Number: SE-UCBSA-079567

PATIENT
  Age: 58 Year
  Sex: Female

DRUGS (2)
  1. CIMZIA [Suspect]
     Indication: POLYARTHRITIS
     Dosage: 200, 200,MG
     Dates: start: 20100824
  2. METHOTREXATE [Suspect]
     Dosage: 20, 20, MG
     Dates: start: 20080416

REACTIONS (1)
  - Infection susceptibility increased [Recovered/Resolved]
